FAERS Safety Report 14823222 (Version 2)
Quarter: 2018Q2

REPORT INFORMATION
  Report Type: Report from Study
  Country: PH (occurrence: PH)
  Receive Date: 20180427
  Receipt Date: 20180529
  Transmission Date: 20180711
  Serious: Yes (Death)
  Sender: FDA-Public Use
  Company Number: PHHY2018PH074745

PATIENT
  Age: 70 Year
  Sex: Male

DRUGS (1)
  1. GLIVEC [Suspect]
     Active Substance: IMATINIB MESYLATE
     Indication: GASTROINTESTINAL STROMAL TUMOUR
     Dosage: 400 MG, UNK
     Route: 048
     Dates: start: 20141112

REACTIONS (1)
  - Death [Fatal]

NARRATIVE: CASE EVENT DATE: 20171228
